FAERS Safety Report 7835110-X (Version None)
Quarter: 2011Q4

REPORT INFORMATION
  Report Type: 
  Country: None (occurrence: None)
  Receive Date: 20111024
  Receipt Date: 20111011
  Transmission Date: 20120403
  Serious: No
  Sender: FDA-Public Use
  Company Number: JP-ELI_LILLY_AND_COMPANY-JP201109003453

PATIENT
  Age: 75 Year
  Sex: Male

DRUGS (3)
  1. ZYPREXA [Suspect]
     Indication: SCHIZOPHRENIA
     Dosage: 2.5 MG, QD
     Route: 048
  2. EFFORTIL [Concomitant]
     Dosage: UNK
     Route: 048
  3. ROHYPNOL [Concomitant]
     Dosage: UNK
     Route: 048

REACTIONS (3)
  - HYPOTENSION [None]
  - DIZZINESS [None]
  - GRANULOCYTOPENIA [None]
